FAERS Safety Report 11313275 (Version 1)
Quarter: 2015Q3

REPORT INFORMATION
  Report Type: Spontaneous
  Country: US (occurrence: US)
  Receive Date: 20150727
  Receipt Date: 20150727
  Transmission Date: 20151125
  Serious: No
  Sender: FDA-Public Use
  Company Number: US-ABBVIE-14P-163-1281845-00

PATIENT
  Sex: Female
  Weight: 62.65 kg

DRUGS (3)
  1. SYNTHROID [Suspect]
     Active Substance: LEVOTHYROXINE SODIUM
     Indication: THYROID DISORDER
     Dates: start: 2013
  2. UNKNOWN MEDICATION FOR DIARRHEA [Concomitant]
     Indication: DIARRHOEA
     Dosage: 3-4 PER WEEK
  3. UNKNOWN MEDICATION [Concomitant]
     Active Substance: UNSPECIFIED INGREDIENT
     Indication: THYROID DISORDER

REACTIONS (9)
  - Decreased appetite [Unknown]
  - Drug ineffective [Unknown]
  - Thinking abnormal [Unknown]
  - Quality of life decreased [Unknown]
  - Pharyngeal oedema [Unknown]
  - Insomnia [Unknown]
  - Emotional disorder [Unknown]
  - Gout [Unknown]
  - Alopecia [Unknown]
